FAERS Safety Report 4636876-2 (Version None)
Quarter: 2005Q2

REPORT INFORMATION
  Report Type: 
  Country: None (occurrence: None)
  Receive Date: 20050413
  Receipt Date: 20050413
  Transmission Date: 20051028
  Serious: No
  Sender: FDA-Public Use
  Company Number: None

PATIENT
  Age: 78 Year
  Sex: Male
  Weight: 95.2554 kg

DRUGS (9)
  1. FLOMAX [Suspect]
     Indication: BENIGN PROSTATIC HYPERPLASIA
     Dosage: ONE  QDAY  ORAL
     Route: 048
     Dates: start: 20020101, end: 20050430
  2. METFORMIN [Concomitant]
  3. AMARYL [Concomitant]
  4. LIPITOR [Concomitant]
  5. NORVASC [Concomitant]
  6. ASPIRIN [Concomitant]
  7. SYNTHROID [Concomitant]
  8. PREVACID [Concomitant]
  9. MIROPROSTAL [Concomitant]

REACTIONS (3)
  - IRIDOCELE [None]
  - IRIS DISORDER [None]
  - PROCEDURAL COMPLICATION [None]
